FAERS Safety Report 4646017-3 (Version None)
Quarter: 2005Q2

REPORT INFORMATION
  Report Type: 
  Country: None (occurrence: None)
  Receive Date: 20050422
  Receipt Date: 20050422
  Transmission Date: 20051028
  Serious: Yes (Death)
  Sender: FDA-Public Use
  Company Number: None

PATIENT
  Age: 43 Year
  Sex: Female
  Weight: 96.6162 kg

DRUGS (1)
  1. FLUPHENAZINE [Suspect]
     Indication: PSYCHOTIC DISORDER

REACTIONS (2)
  - ARRHYTHMIA [None]
  - CIRCULATORY COLLAPSE [None]
